FAERS Safety Report 10449886 (Version 1)
Quarter: 2014Q3

REPORT INFORMATION
  Report Type: Spontaneous
  Country: JP (occurrence: None)
  Receive Date: 20140910
  Receipt Date: 20140910
  Transmission Date: 20150326
  Serious: Yes (Other)
  Sender: FDA-Public Use
  Company Number: INC-14-000225

PATIENT
  Sex: Female

DRUGS (1)
  1. CRAVIT (LEVOFLOXACIN 0.5%) [Suspect]
     Active Substance: LEVOFLOXACIN
     Route: 061

REACTIONS (1)
  - Anaphylactoid reaction [None]
